FAERS Safety Report 8915133 (Version 1)
Quarter: 2012Q4

REPORT INFORMATION
  Report Type: 
  Country: CA (occurrence: CA)
  Receive Date: 20121119
  Receipt Date: 20121119
  Transmission Date: 20130627
  Serious: Yes (Death)
  Sender: FDA-Public Use
  Company Number: CA-ASTRAZENECA-2012SE86965

PATIENT
  Age: 32 Year
  Sex: Male

DRUGS (7)
  1. SEROQUEL [Suspect]
     Route: 048
  2. EFFEXOR XR [Suspect]
     Route: 065
  3. COCAINE [Suspect]
     Route: 065
  4. DILAUDID [Suspect]
     Route: 042
  5. DILAUDID [Suspect]
     Route: 042
  6. CANNABIS SATIVA SUBSP. INDICA TOP [Suspect]
     Route: 065
  7. METHAMPHETAMINE [Suspect]
     Route: 065

REACTIONS (3)
  - Overdose [Fatal]
  - Drug dependence [Fatal]
  - Substance abuse [Fatal]
